FAERS Safety Report 23616270 (Version 3)
Quarter: 2024Q2

REPORT INFORMATION
  Report Type: Spontaneous
  Country: US (occurrence: US)
  Receive Date: 20240311
  Receipt Date: 20240503
  Transmission Date: 20240716
  Serious: Yes (Disabling, Other)
  Sender: FDA-Public Use
  Company Number: US-HORIZON THERAPEUTICS-HZN-2024-002757

PATIENT

DRUGS (10)
  1. TEPEZZA [Suspect]
     Active Substance: TEPROTUMUMAB-TRBW
     Indication: Endocrine ophthalmopathy
     Dosage: 1200 MG, SINGLE (FIRST INFUSION)
     Route: 042
     Dates: start: 20220131, end: 20220131
  2. TEPEZZA [Suspect]
     Active Substance: TEPROTUMUMAB-TRBW
     Indication: Graves^ disease
     Dosage: 2400 MG, EVERY 3 WEEKS (SECOND INFUSION)
     Route: 042
     Dates: start: 20220221, end: 20220221
  3. TEPEZZA [Suspect]
     Active Substance: TEPROTUMUMAB-TRBW
     Dosage: 2800 MG, EVERY 3 WEEKS (THIRD INFUSION)
     Route: 042
     Dates: start: 20220314, end: 20220314
  4. TEPEZZA [Suspect]
     Active Substance: TEPROTUMUMAB-TRBW
     Dosage: 2780 MG, EVERY 3 WEEKS (FOURTH INFUSION)
     Route: 042
     Dates: start: 20220404, end: 20220404
  5. TEPEZZA [Suspect]
     Active Substance: TEPROTUMUMAB-TRBW
     Dosage: 2800 MG, EVERY 3 WEEKS (FIFTH INFUSION)
     Route: 042
     Dates: start: 20220425, end: 20220425
  6. TEPEZZA [Suspect]
     Active Substance: TEPROTUMUMAB-TRBW
     Dosage: 2760 MG, EVERY 3 WEEKS (SIXTH INFUSION)
     Route: 042
     Dates: start: 20220516, end: 20220516
  7. TEPEZZA [Suspect]
     Active Substance: TEPROTUMUMAB-TRBW
     Dosage: 2720 MG, EVERY 3 WEEKS (SEVENTH INFUSION)
     Route: 042
     Dates: start: 20220606, end: 20220606
  8. TEPEZZA [Suspect]
     Active Substance: TEPROTUMUMAB-TRBW
     Dosage: LAST INFUSION
     Route: 042
     Dates: start: 20220627, end: 20220627
  9. RESTASIS [Concomitant]
     Active Substance: CYCLOSPORINE
     Dosage: 1 DROP, BID
     Route: 047
     Dates: start: 20211202
  10. VITAMIN D [Concomitant]
     Active Substance: VITAMIN D NOS
     Dosage: UNK UNK, QD

REACTIONS (17)
  - Deafness neurosensory [Not Recovered/Not Resolved]
  - Disability [Not Recovered/Not Resolved]
  - Physical disability [Not Recovered/Not Resolved]
  - Deformity [Not Recovered/Not Resolved]
  - Injury [Not Recovered/Not Resolved]
  - Pain [Not Recovered/Not Resolved]
  - Emotional distress [Not Recovered/Not Resolved]
  - Impaired quality of life [Not Recovered/Not Resolved]
  - Economic problem [Not Recovered/Not Resolved]
  - Discomfort [Not Recovered/Not Resolved]
  - Concomitant disease aggravated [Not Recovered/Not Resolved]
  - Anxiety [Not Recovered/Not Resolved]
  - Tinnitus [Not Recovered/Not Resolved]
  - Product quality issue [Unknown]
  - Gait disturbance [Unknown]
  - Lacrimation increased [Unknown]
  - Muscle spasms [Recovered/Resolved]

NARRATIVE: CASE EVENT DATE: 20220401
